FAERS Safety Report 15527327 (Version 1)
Quarter: 2018Q4

REPORT INFORMATION
  Report Type: Spontaneous
  Country: US (occurrence: US)
  Receive Date: 20181020
  Receipt Date: 20181020
  Transmission Date: 20190205
  Serious: Yes (Disabling)
  Sender: FDA-Public Use
  Company Number: US-ZYDUS-019206

PATIENT
  Age: 53 Year
  Sex: Female

DRUGS (6)
  1. LEVOFLOXACIN. [Suspect]
     Active Substance: LEVOFLOXACIN
     Indication: SINUSITIS
     Route: 048
     Dates: start: 20170228, end: 20170303
  2. NAPROXEN. [Concomitant]
     Active Substance: NAPROXEN
     Indication: BRONCHITIS
     Route: 065
  3. GUAIFENESIN. [Concomitant]
     Active Substance: GUAIFENESIN
     Indication: BRONCHITIS
     Route: 065
  4. LEVOFLOXACIN. [Suspect]
     Active Substance: LEVOFLOXACIN
     Indication: BRONCHITIS
     Route: 048
     Dates: start: 20170228, end: 20170303
  5. NAPROXEN. [Concomitant]
     Active Substance: NAPROXEN
     Indication: SINUSITIS
     Route: 065
  6. GUAIFENESIN. [Concomitant]
     Active Substance: GUAIFENESIN
     Indication: SINUSITIS
     Route: 065

REACTIONS (5)
  - Insomnia [Recovered/Resolved]
  - Oropharyngeal pain [Unknown]
  - Trigeminal neuralgia [Not Recovered/Not Resolved]
  - Neuropathy peripheral [Not Recovered/Not Resolved]
  - Palpitations [Recovered/Resolved]

NARRATIVE: CASE EVENT DATE: 2017
